FAERS Safety Report 25829538 (Version 1)
Quarter: 2025Q3

REPORT INFORMATION
  Report Type: Spontaneous
  Country: EU (occurrence: EU)
  Receive Date: 20250922
  Receipt Date: 20250922
  Transmission Date: 20251020
  Serious: Yes (Death, Hospitalization, Other)
  Sender: AUROBINDO
  Company Number: EU-002147023-NVSC2025IT139763

PATIENT
  Age: 35 Year
  Sex: Female

DRUGS (12)
  1. AMIODARONE [Suspect]
     Active Substance: AMIODARONE
     Indication: Ventricular fibrillation
     Route: 065
  2. DABRAFENIB [Suspect]
     Active Substance: DABRAFENIB
     Indication: Malignant melanoma
     Dosage: 300 MILLIGRAM, ONCE A DAY
     Route: 065
     Dates: start: 202403, end: 20240516
  3. DABRAFENIB [Suspect]
     Active Substance: DABRAFENIB
     Dosage: 200 MILLIGRAM, ONCE A DAY
     Route: 065
     Dates: start: 20240530, end: 20240602
  4. DABRAFENIB [Suspect]
     Active Substance: DABRAFENIB
     Route: 065
     Dates: start: 20240606
  5. TRAMETINIB [Suspect]
     Active Substance: TRAMETINIB
     Indication: Malignant melanoma
     Dosage: 2 MILLIGRAM, ONCE A DAY
     Route: 065
     Dates: start: 202403, end: 20240516
  6. TRAMETINIB [Suspect]
     Active Substance: TRAMETINIB
     Dosage: 1.5 MILLIGRAM, ONCE A DAY
     Route: 065
     Dates: start: 20240530, end: 20240602
  7. TRAMETINIB [Suspect]
     Active Substance: TRAMETINIB
     Dosage: 1 MILLIGRAM, ONCE A DAY
     Route: 065
     Dates: start: 20240606
  8. EPINEPHRINE [Suspect]
     Active Substance: EPINEPHRINE
     Indication: Ventricular fibrillation
     Route: 065
  9. METHYLPREDNISOLONE [Suspect]
     Active Substance: METHYLPREDNISOLONE
     Indication: Myocarditis
     Route: 065
  10. METFORMIN [Concomitant]
     Active Substance: METFORMIN HYDROCHLORIDE
     Indication: Monogenic diabetes
     Route: 065
  11. GLICLAZIDE [Concomitant]
     Active Substance: GLICLAZIDE
     Indication: Monogenic diabetes
     Route: 065
  12. EMPAGLIFLOZIN [Concomitant]
     Active Substance: EMPAGLIFLOZIN
     Indication: Monogenic diabetes
     Route: 065

REACTIONS (10)
  - Cardiac arrest [Fatal]
  - Ventricular fibrillation [Fatal]
  - Myocarditis [Fatal]
  - Hyperpyrexia [Recovered/Resolved]
  - Loss of consciousness [Unknown]
  - Drug ineffective [Unknown]
  - Vomiting [Unknown]
  - Nausea [Unknown]
  - Hypotension [Unknown]
  - Transaminases increased [Unknown]
